FAERS Safety Report 8009921-4 (Version None)
Quarter: 2011Q4

REPORT INFORMATION
  Report Type: 
  Country: None (occurrence: None)
  Receive Date: 20111228
  Receipt Date: 20111215
  Transmission Date: 20120403
  Serious: Yes (Hospitalization, Other)
  Sender: FDA-Public Use
  Company Number: PHHY2010CA25403

PATIENT
  Sex: Male

DRUGS (1)
  1. SANDOSTATIN LAR [Suspect]
     Indication: PANCREATIC NEUROENDOCRINE TUMOUR
     Dosage: 30 MG EVERY 4 WEEKS
     Route: 030
     Dates: start: 20081102

REACTIONS (9)
  - ABDOMINAL PAIN [None]
  - COLON NEOPLASM [None]
  - NEOPLASM MALIGNANT [None]
  - WOUND [None]
  - GASTROENTERITIS VIRAL [None]
  - MASS [None]
  - GASTROINTESTINAL INFLAMMATION [None]
  - COLONOSCOPY ABNORMAL [None]
  - HAEMATOCHEZIA [None]
